FAERS Safety Report 9699901 (Version 2)
Quarter: 2014Q1

REPORT INFORMATION
  Report Type: Report from Study
  Country: JP (occurrence: JP)
  Receive Date: 20131121
  Receipt Date: 20140122
  Transmission Date: 20141002
  Serious: Yes (Other)
  Sender: FDA-Public Use
  Company Number: JP-ROCHE-1307234

PATIENT
  Age: 76 Year
  Sex: Female

DRUGS (3)
  1. ALTEPLASE [Suspect]
     Indication: CEREBRAL ARTERIOSCLEROSIS
     Route: 065
  2. ALTEPLASE [Suspect]
     Indication: CEREBRAL INFARCTION
  3. EDARAVONE [Concomitant]

REACTIONS (2)
  - Cerebral infarction [Unknown]
  - Neurological decompensation [Unknown]
